FAERS Safety Report 7751123-0 (Version None)
Quarter: 2011Q3

REPORT INFORMATION
  Report Type: 
  Country: None (occurrence: None)
  Receive Date: 20110914
  Receipt Date: 20110901
  Transmission Date: 20111222
  Serious: Yes (Other)
  Sender: FDA-Public Use
  Company Number: GB-GENENTECH-321629

PATIENT
  Sex: Female

DRUGS (2)
  1. LUCENTIS [Suspect]
     Indication: PRODUCT USED FOR UNKNOWN INDICATION
     Dosage: UNK
     Route: 031
     Dates: start: 20110505, end: 20110505
  2. LUCENTIS [Suspect]
     Dosage: UNK
     Route: 031
     Dates: start: 20110603, end: 20110603

REACTIONS (1)
  - ADVERSE DRUG REACTION [None]
